FAERS Safety Report 6140462-5 (Version None)
Quarter: 2009Q2

REPORT INFORMATION
  Report Type: 
  Country: None (occurrence: None)
  Receive Date: 20090401
  Receipt Date: 20090320
  Transmission Date: 20091009
  Serious: Yes (Life-Threatening, Other)
  Sender: FDA-Public Use
  Company Number: FR-PFIZER INC-2009187501

PATIENT

DRUGS (6)
  1. XANAX [Suspect]
     Indication: ANXIETY
     Route: 048
     Dates: start: 20081001, end: 20090206
  2. PEG-INTRON [Suspect]
     Indication: HEPATITIS C
     Route: 058
     Dates: start: 20080509
  3. RIBAVIRIN [Suspect]
     Indication: HEPATITIS C
     Dosage: 500 MG, 2X/DAY
     Route: 048
     Dates: start: 20080509
  4. ETIFOXINE [Suspect]
     Indication: ANXIETY
     Route: 048
     Dates: start: 20090209, end: 20090211
  5. CODEINE PHOSPHATE/PARACETAMOL [Suspect]
     Indication: PAIN
     Dosage: FREQUENCY: PRN,
     Route: 048
     Dates: start: 20090213, end: 20090213
  6. ADALAT [Concomitant]
     Indication: BLOOD PRESSURE INCREASED
     Route: 048

REACTIONS (3)
  - CONVULSION [None]
  - FEMORAL NECK FRACTURE [None]
  - SYNCOPE [None]
